FAERS Safety Report 5214651-8 (Version None)
Quarter: 2006Q4

REPORT INFORMATION
  Report Type: 
  Country: None (occurrence: None)
  Receive Date: 20061108
  Receipt Date: 20060404
  Transmission Date: 20070319
  Serious: Yes (Other)
  Sender: FDA-Public Use
  Company Number: US200604000725

PATIENT
  Age: 46 Year
  Sex: Male

DRUGS (6)
  1. PROZAC [Suspect]
     Indication: DEPRESSION
     Dosage: 80 MG; SEE IMAGE
     Dates: end: 20060323
  2. PROZAC [Suspect]
     Indication: DEPRESSION
     Dosage: 80 MG; SEE IMAGE
  3. CYMBALTA [Suspect]
     Indication: DEPRESSION
     Dosage: 60 MG
     Dates: start: 20060316
  4. LORTAB [Concomitant]
  5. VISTARIL [Concomitant]
  6. SEROQUEL [Concomitant]

REACTIONS (8)
  - DEPRESSION [None]
  - DRUG INEFFECTIVE [None]
  - INSOMNIA [None]
  - JOINT INJURY [None]
  - ROAD TRAFFIC ACCIDENT [None]
  - SOMNOLENCE [None]
  - SUICIDAL IDEATION [None]
  - THINKING ABNORMAL [None]
